FAERS Safety Report 5236974-9 (Version None)
Quarter: 2007Q1

REPORT INFORMATION
  Report Type: 
  Country: None (occurrence: None)
  Receive Date: 20070209
  Receipt Date: 20070130
  Transmission Date: 20070707
  Serious: Yes (Congenital Anomaly)
  Sender: FDA-Public Use
  Company Number: S07-USA-00480-02

PATIENT
  Sex: Male
  Weight: 2.8622 kg

DRUGS (2)
  1. LEXAPRO [Suspect]
     Dosage: 10 MF, QD; TRANSPLACENTAL
     Route: 064
     Dates: end: 20060101
  2. PRENATAL VITAMIN (NOS) [Concomitant]

REACTIONS (9)
  - ATRIOVENTRICULAR SEPTAL DEFECT [None]
  - DEXTROCARDIA [None]
  - DOUBLE OUTLET RIGHT VENTRICLE [None]
  - DRUG EXPOSURE DURING PREGNANCY [None]
  - HEART DISEASE CONGENITAL [None]
  - PATENT DUCTUS ARTERIOSUS [None]
  - SPLEEN MALFORMATION [None]
  - TAKAYASU'S ARTERITIS [None]
  - TRANSPOSITION OF THE GREAT VESSELS [None]
